FAERS Safety Report 5394398-8 (Version None)
Quarter: 2007Q3

REPORT INFORMATION
  Report Type: 
  Country: None (occurrence: None)
  Receive Date: 20070723
  Receipt Date: 20070530
  Transmission Date: 20080115
  Serious: Yes (Other)
  Sender: FDA-Public Use
  Company Number: US-PURDUE-USA_2003_0006104

PATIENT
  Age: 66 Year
  Sex: Male
  Weight: 95 kg

DRUGS (17)
  1. ZIAC [Concomitant]
     Indication: METASTATIC NEOPLASM
     Dosage: 2.5 MG, DAILY
     Route: 048
  2. BENTYL [Concomitant]
     Indication: DRUG USE FOR UNKNOWN INDICATION
     Dosage: 10 MG, TID
     Route: 048
     Dates: start: 20000828
  3. ATIVAN [Concomitant]
     Indication: DRUG USE FOR UNKNOWN INDICATION
     Dosage: 1 MG, NOCTE
     Route: 048
  4. DECADRON [Concomitant]
     Indication: DRUG USE FOR UNKNOWN INDICATION
     Dosage: 1 ML, MONTHLY
     Route: 030
  5. VITAMIN B-12 [Concomitant]
     Indication: DRUG USE FOR UNKNOWN INDICATION
     Dosage: 1 ML, MONTHLY
     Route: 030
  6. TYLENOL W/ CODEINE NO. 4 [Concomitant]
     Indication: PAIN
     Dosage: UNK TABLET, PRN
     Route: 048
  7. ALLOPURINOL [Concomitant]
     Indication: GOUT
     Dosage: 100 MG, TID
     Route: 048
  8. PROBENECID [Concomitant]
     Indication: DRUG USE FOR UNKNOWN INDICATION
     Dosage: 250 MG, BID
     Route: 048
     Dates: start: 19991214
  9. PREVACID [Concomitant]
     Indication: DRUG USE FOR UNKNOWN INDICATION
     Dosage: 30 MG, DAILY
     Route: 048
  10. KENALOG [Concomitant]
     Indication: DRUG USE FOR UNKNOWN INDICATION
     Route: 061
     Dates: start: 20000323
  11. TAGAMET [Concomitant]
     Indication: DRUG USE FOR UNKNOWN INDICATION
     Dosage: 400 MG, DAILY
     Route: 048
     Dates: start: 20000223
  12. CLONIDINE [Concomitant]
     Indication: DRUG USE FOR UNKNOWN INDICATION
     Dosage: .1 MG, BID
     Route: 048
     Dates: start: 20010214
  13. ZANTAC 150 [Concomitant]
     Indication: DRUG USE FOR UNKNOWN INDICATION
     Dosage: 150 MG, NOCTE
     Route: 048
     Dates: start: 20010329
  14. INDOCIN [Concomitant]
     Indication: DRUG USE FOR UNKNOWN INDICATION
     Dosage: 25 MG, TID
     Route: 048
     Dates: start: 20000824
  15. OXYCONTIN [Suspect]
     Indication: PAIN
     Dosage: 20 MG, BID
     Route: 048
     Dates: start: 19990716, end: 20010405
  16. NITROGLYCERIN [Concomitant]
     Indication: DRUG USE FOR UNKNOWN INDICATION
     Dosage: UNK, UNK
  17. LORCET-HD [Concomitant]
     Indication: DRUG USE FOR UNKNOWN INDICATION
     Dosage: UNK, UNK

REACTIONS (18)
  - ANXIETY [None]
  - ASTHENIA [None]
  - BASAL CELL CARCINOMA [None]
  - BREAST MASS [None]
  - CELLULITIS [None]
  - DRUG DEPENDENCE [None]
  - DRUG WITHDRAWAL SYNDROME [None]
  - DYSURIA [None]
  - GASTRITIS [None]
  - GOUT [None]
  - HYPERGLYCAEMIA [None]
  - MAJOR DEPRESSION [None]
  - OTITIS EXTERNA [None]
  - PAIN [None]
  - POLLAKIURIA [None]
  - SINUSITIS [None]
  - SUICIDAL IDEATION [None]
  - URINARY HESITATION [None]
